FAERS Safety Report 25999671 (Version 1)
Quarter: 2025Q4

REPORT INFORMATION
  Report Type: Other
  Country: GB (occurrence: GB)
  Receive Date: 20251105
  Receipt Date: 20251105
  Transmission Date: 20260117
  Serious: Yes (Other)
  Sender: MACLEODS
  Company Number: None

PATIENT

DRUGS (2)
  1. LEVOFLOXACIN [Suspect]
     Active Substance: LEVOFLOXACIN
     Indication: Bacterial infection
     Dosage: 500MG ONCE A DAY
     Route: 065
     Dates: start: 20251021, end: 20251024
  2. SYMBICORT [Concomitant]
     Active Substance: BUDESONIDE\FORMOTEROL FUMARATE DIHYDRATE
     Indication: Asthma

REACTIONS (7)
  - Joint stiffness [Recovering/Resolving]
  - Paraesthesia [Not Recovered/Not Resolved]
  - Myalgia [Recovering/Resolving]
  - Tendon pain [Recovering/Resolving]
  - Nausea [Recovered/Resolved]
  - Arthralgia [Recovering/Resolving]
  - Medication error [Unknown]
